FAERS Safety Report 11517017 (Version 1)
Quarter: 2015Q3

REPORT INFORMATION
  Report Type: Spontaneous
  Country: ES (occurrence: ES)
  Receive Date: 20150917
  Receipt Date: 20150917
  Transmission Date: 20151125
  Serious: Yes (Other)
  Sender: FDA-Public Use
  Company Number: ES-EISAI MEDICAL RESEARCH-E2007-01510-SPO-ES

PATIENT
  Age: 14 Year
  Sex: Female

DRUGS (4)
  1. FYCOMPA [Suspect]
     Active Substance: PERAMPANEL
     Dosage: 8 MG
     Route: 048
     Dates: start: 201402, end: 201403
  2. TOPIRAMATE. [Concomitant]
     Active Substance: TOPIRAMATE
     Indication: PARTIAL SEIZURES
     Dosage: 300 MG
     Route: 048
     Dates: start: 2011
  3. FYCOMPA [Suspect]
     Active Substance: PERAMPANEL
     Indication: PARTIAL SEIZURES
     Dosage: 4 MG
     Route: 048
     Dates: start: 201401, end: 201402
  4. ESLICARBEZEPINE ACETATE [Concomitant]
     Indication: PARTIAL SEIZURES
     Dosage: 1200 MG
     Route: 048
     Dates: start: 2013

REACTIONS (2)
  - Seizure [Not Recovered/Not Resolved]
  - Fall [Not Recovered/Not Resolved]

NARRATIVE: CASE EVENT DATE: 201401
